FAERS Safety Report 4520266-7 (Version None)
Quarter: 2004Q4

REPORT INFORMATION
  Report Type: 
  Country: None (occurrence: None)
  Receive Date: 20041201
  Receipt Date: 20041201
  Transmission Date: 20050328
  Serious: Yes (Death)
  Sender: FDA-Public Use
  Company Number: None

PATIENT
  Age: 10 Week
  Sex: Female
  Weight: 4 kg

DRUGS (2)
  1. ORFADIN NOVAFACTOR [Suspect]
     Indication: TYROSINAEMIA
     Dosage: 1 MG/KG/DY PO 1
     Dates: start: 20041002
  2. ORFADIN NOVAFACTOR [Suspect]
     Indication: TYROSINAEMIA
     Dosage: 1 MG/KG/DY PO 1
     Dates: start: 20041103

REACTIONS (2)
  - HEPATIC FAILURE [None]
  - RENAL FAILURE [None]
